FAERS Safety Report 11529214 (Version 1)
Quarter: 2015Q3

REPORT INFORMATION
  Report Type: Spontaneous
  Country: US (occurrence: US)
  Receive Date: 20150921
  Receipt Date: 20150921
  Transmission Date: 20151125
  Serious: No
  Sender: FDA-Public Use
  Company Number: US-TEVA-544175USA

PATIENT
  Sex: Female

DRUGS (1)
  1. CEFACLOR. [Suspect]
     Active Substance: CEFACLOR
     Indication: INFECTION
     Route: 065

REACTIONS (3)
  - Drug hypersensitivity [Unknown]
  - Drug ineffective [Unknown]
  - Adverse event [Unknown]
